FAERS Safety Report 19684611 (Version 1)
Quarter: 2021Q3

REPORT INFORMATION
  Report Type: Spontaneous
  Country: US (occurrence: US)
  Receive Date: 20210811
  Receipt Date: 20210811
  Transmission Date: 20211014
  Serious: Yes (Death, Other)
  Sender: FDA-Public Use
  Company Number: US-STRIDES ARCOLAB LIMITED-2021SP026068

PATIENT
  Age: 19 Year
  Sex: Female

DRUGS (38)
  1. VINCRISTINE [Suspect]
     Active Substance: VINCRISTINE
     Dosage: 2 MILLIGRAM (ON DAY 8) ONE CYCLE
     Route: 042
  2. METHOTREXATE. [Suspect]
     Active Substance: METHOTREXATE
     Dosage: 1000 MILLIGRAM/SQ. METER (COURSE B: DAY 1)
     Route: 042
  3. CYTARABINE. [Suspect]
     Active Substance: CYTARABINE
     Dosage: 500 MILLIGRAM/SQ. METER, EVERY 12 HRS (COURSE B AFTER HYPER?MINI?CVD REGIMEN; DAYS 2+3)
     Route: 042
  4. INOTUZUMAB [Suspect]
     Active Substance: INOTUZUMAB OZOGAMICIN
     Dosage: 0.6 MILLIGRAM/SQ. METER (DAY 1+8)
     Route: 042
  5. FILGRASTIM [Concomitant]
     Active Substance: FILGRASTIM
     Indication: COLONY STIMULATING FACTOR THERAPY
     Dosage: 300 MICROGRAM (ONE CYCLE)
     Route: 065
  6. TISAGENLECLEUCEL?T [Suspect]
     Active Substance: TISAGENLECLEUCEL
     Indication: ACUTE LYMPHOCYTIC LEUKAEMIA
     Dosage: UNK (INFUSION)
     Route: 065
  7. METHOTREXATE. [Suspect]
     Active Substance: METHOTREXATE
     Dosage: 12 MILLIGRAM (DAY 4)
     Route: 037
  8. CYTARABINE. [Suspect]
     Active Substance: CYTARABINE
     Dosage: 3000 MILLIGRAM/SQ. METER, EVERY 12 HRS (COURSE B; DAYS 2+3) HIGH?DOSE
     Route: 042
  9. CYTARABINE. [Suspect]
     Active Substance: CYTARABINE
     Dosage: 1000 MILLIGRAM (COURSE B; DAY 7)
     Route: 037
  10. CYTARABINE. [Suspect]
     Active Substance: CYTARABINE
     Dosage: 100 MILLIGRAM (DAY 8)
     Route: 037
  11. INOTUZUMAB [Suspect]
     Active Substance: INOTUZUMAB OZOGAMICIN
     Indication: ACUTE LYMPHOCYTIC LEUKAEMIA
     Dosage: 1.3 MILLIGRAM/SQ. METER (ALONG WITH HYPER?MINI?CVD REGIMEN; CYCLE 1, DAY 3)
     Route: 042
  12. DOXORUBICIN [Suspect]
     Active Substance: DOXORUBICIN
     Indication: ACUTE LYMPHOCYTIC LEUKAEMIA
     Dosage: 50 MILLIGRAM/SQ. METER HYPER CVAD REGIMEN; DAY 4 ; RECEIVED 4 CYCLES)
     Route: 042
  13. METHOTREXATE. [Suspect]
     Active Substance: METHOTREXATE
     Dosage: 250 MILLIGRAM/SQ. METER (AS A PART OF COURSE B AFTER HYPER?MINI?CVD REGIMEN; DAY 1)
     Route: 042
  14. CYCLOPHOSPHAMIDE. [Suspect]
     Active Substance: CYCLOPHOSPHAMIDE
     Indication: BONE MARROW CONDITIONING REGIMEN
     Dosage: 300 MILLIGRAM/SQ. METER, EVERY 12 HRS (HYPER CVAD REGIMEN; DAYS 1?3; RECEIVED 4 CYCLES)
     Route: 042
  15. FILGRASTIM [Concomitant]
     Active Substance: FILGRASTIM
     Indication: ACUTE LYMPHOCYTIC LEUKAEMIA
  16. DEXAMETHASONE. [Suspect]
     Active Substance: DEXAMETHASONE
     Indication: ACUTE LYMPHOCYTIC LEUKAEMIA
     Dosage: 40 MILLIGRAM DAILY (HYPER CVAD REGIMEN; DAYS 1?4, 11?14; ; RECEIVED 4 CYCLES)
     Route: 065
  17. DEXAMETHASONE. [Suspect]
     Active Substance: DEXAMETHASONE
     Dosage: 20 MILLIGRAM/SQ. METER PER DAY (HYPER?MINI?CVD REGIMEN; DAY 1?4, 11?14)
     Route: 065
  18. METHOTREXATE. [Suspect]
     Active Substance: METHOTREXATE
     Indication: ACUTE LYMPHOCYTIC LEUKAEMIA
     Dosage: UNK (MAINTENANCE THERAPY)
     Route: 065
  19. METHOTREXATE. [Suspect]
     Active Substance: METHOTREXATE
     Dosage: 12 MILLIGRAM (ALONG WITH HYPER?MINI?CVD REGIMEN; DAY 4)
     Route: 037
  20. FLUDARABINE [Suspect]
     Active Substance: FLUDARABINE PHOSPHATE
     Indication: ACUTE LYMPHOCYTIC LEUKAEMIA
     Dosage: 30 MILLIGRAM/SQ. METER PER DAY (DAYS 1?5) ONE CYCLE
     Route: 042
  21. CYTARABINE. [Suspect]
     Active Substance: CYTARABINE
     Dosage: 500 MILLIGRAM/SQ. METER, EVERY 12 HRS (DAYS 3+4)
     Route: 042
  22. CYCLOPHOSPHAMIDE. [Suspect]
     Active Substance: CYCLOPHOSPHAMIDE
     Indication: ACUTE LYMPHOCYTIC LEUKAEMIA
     Dosage: 60 MILLIGRAM/KILOGRAM PER DAY (CONDITIONING REGIMEN; DAYS ?3 AND ?2)
     Route: 042
  23. METHOTREXATE. [Suspect]
     Active Substance: METHOTREXATE
     Dosage: 250 MILLIGRAM/SQ. METER (DAY 1)
     Route: 065
  24. MERCAPTOPURINE. [Suspect]
     Active Substance: MERCAPTOPURINE
     Indication: ACUTE LYMPHOCYTIC LEUKAEMIA
     Dosage: UNK (MAINTENANCE THERAPY)
     Route: 065
  25. BLINATUMOMAB [Suspect]
     Active Substance: BLINATUMOMAB
     Dosage: UNK (RECEIVED 1 CYCLE IN ADDITION TO HYPER?CVAD REGIMEN)
     Route: 065
  26. RITUXIMAB. [Suspect]
     Active Substance: RITUXIMAB
     Indication: ACUTE LYMPHOCYTIC LEUKAEMIA
     Dosage: 375 MILLIGRAM/SQ. METER (ALONG WITH HYPER?MINI?CVD REGIMEN AND AS A PART OF COURSE B; DAY 1+8)
     Route: 042
  27. INOTUZUMAB [Suspect]
     Active Substance: INOTUZUMAB OZOGAMICIN
     Dosage: 0.6 MILLIGRAM/SQ. METER (DAY 2+8)
     Route: 042
  28. VINCRISTINE [Suspect]
     Active Substance: VINCRISTINE
     Indication: ACUTE LYMPHOCYTIC LEUKAEMIA
     Dosage: UNK (MAINTENANCE THERAPY)
     Route: 065
  29. VINCRISTINE [Suspect]
     Active Substance: VINCRISTINE
     Dosage: 2 MILLIGRAM (HYPER?CVAD REGIMEN; DAYS 4+11; RECEIVED 4 CYCLES)
     Route: 042
  30. VINCRISTINE [Suspect]
     Active Substance: VINCRISTINE
     Dosage: 1 MILLIGRAM (DAY 1+8)
     Route: 042
  31. METHOTREXATE. [Suspect]
     Active Substance: METHOTREXATE
     Dosage: 12 MILLIGRAM (DAY 4)
     Route: 037
  32. CYTARABINE. [Suspect]
     Active Substance: CYTARABINE
     Indication: ACUTE LYMPHOCYTIC LEUKAEMIA
     Dosage: 2000 MILLIGRAM/SQ. METER PER DAY (DAYS 1?5) HIGH?DOSE ONE CYCLE
     Route: 042
  33. CYTARABINE. [Suspect]
     Active Substance: CYTARABINE
     Dosage: 100 MILLIGRAM (ALONG WITH HYPER?MINI?CVD REGIMEN; DAY 8)
     Route: 037
  34. CYCLOPHOSPHAMIDE. [Suspect]
     Active Substance: CYCLOPHOSPHAMIDE
     Dosage: 150 MILLIGRAM/SQ. METER, EVERY 12 HRS (HYPER?MINI?CVD REGIMEN; DAY 1?3)
     Route: 042
  35. PREDNISOLONE. [Suspect]
     Active Substance: PREDNISOLONE
     Indication: ACUTE LYMPHOCYTIC LEUKAEMIA
     Dosage: UNK (MAINTENANCE THERAPY)
     Route: 065
  36. VINCRISTINE [Suspect]
     Active Substance: VINCRISTINE
     Dosage: 2 MILLIGRAM (HYPER?MINI?CVD REGIMEN; DAY 1+8)
     Route: 042
  37. BLINATUMOMAB [Suspect]
     Active Substance: BLINATUMOMAB
     Indication: ACUTE LYMPHOCYTIC LEUKAEMIA
     Dosage: UNK UNK, CYCLICAL (ONE CYCLE)
     Route: 065
  38. CYTARABINE. [Suspect]
     Active Substance: CYTARABINE
     Dosage: 100 MILLIGRAM (AS A PART OF COURSE B AFTER HYPER?MINI?CVD REGIMEN; DAY 8)
     Route: 037

REACTIONS (2)
  - Sepsis [Fatal]
  - Drug ineffective [Unknown]
